FAERS Safety Report 11239282 (Version 3)
Quarter: 2015Q3

REPORT INFORMATION
  Report Type: Spontaneous
  Country: US (occurrence: US)
  Receive Date: 20150706
  Receipt Date: 20150804
  Transmission Date: 20151125
  Serious: No
  Sender: FDA-Public Use
  Company Number: US-BIOGENIDEC-2015BI091671

PATIENT
  Age: 60 Year
  Sex: Female
  Weight: 68 kg

DRUGS (7)
  1. AMPYRA [Concomitant]
     Active Substance: DALFAMPRIDINE
     Indication: MULTIPLE SCLEROSIS
     Route: 048
     Dates: start: 2014
  2. VITAMIN D [Concomitant]
     Active Substance: CHOLECALCIFEROL
  3. BACLOFEN. [Concomitant]
     Active Substance: BACLOFEN
     Dates: start: 1999
  4. CITALOPRAM [Concomitant]
     Active Substance: CITALOPRAM HYDROBROMIDE
     Dates: start: 1999
  5. SYNTHROID [Concomitant]
     Active Substance: LEVOTHYROXINE SODIUM
  6. CALCIUM-MAGNESIUM WITH ZINC [Concomitant]
  7. TECFIDERA [Suspect]
     Active Substance: DIMETHYL FUMARATE
     Indication: PRODUCT USED FOR UNKNOWN INDICATION
     Dates: start: 2014

REACTIONS (6)
  - Muscle spasms [Not Recovered/Not Resolved]
  - Dyspepsia [Recovered/Resolved]
  - Head injury [Unknown]
  - Laceration [Recovered/Resolved]
  - Flushing [Recovered/Resolved]
  - Fall [Recovered/Resolved]

NARRATIVE: CASE EVENT DATE: 2014
